FAERS Safety Report 23590140 (Version 1)
Quarter: 2024Q1

REPORT INFORMATION
  Report Type: Spontaneous
  Country: CN (occurrence: CN)
  Receive Date: 20240304
  Receipt Date: 20240304
  Transmission Date: 20240410
  Serious: Yes (Hospitalization, Other)
  Sender: FDA-Public Use
  Company Number: CN-RDY-LIT/CHN/24/0003607

PATIENT
  Age: 68 Year
  Sex: Female

DRUGS (2)
  1. FULVESTRANT [Suspect]
     Active Substance: FULVESTRANT
     Indication: Mucinous breast carcinoma
     Dosage: 0.5 G ON THE FIRST DAY
     Route: 030
     Dates: start: 20210512
  2. PALBOCICLIB [Suspect]
     Active Substance: PALBOCICLIB
     Indication: Mucinous breast carcinoma
     Dosage: ONCE DAILY FOR 21 DAYS WITH A 7-DAY INTERVAL
     Route: 048
     Dates: start: 20210512

REACTIONS (1)
  - Left ventricular failure [Recovering/Resolving]

NARRATIVE: CASE EVENT DATE: 20211020
